FAERS Safety Report 5056654-2 (Version None)
Quarter: 2006Q2

REPORT INFORMATION
  Report Type: 
  Country: None (occurrence: None)
  Receive Date: 20060616
  Receipt Date: 20060516
  Transmission Date: 20061013
  Serious: No
  Sender: FDA-Public Use
  Company Number: 225193

PATIENT
  Age: 65 Year
  Sex: Male

DRUGS (3)
  1. AVASTIN [Suspect]
     Indication: NON-SMALL CELL LUNG CANCER
     Dosage: 1200 MG, Q2W
  2. TAXOTERE [Concomitant]
  3. CARBOPLATIN [Concomitant]

REACTIONS (1)
  - HYPERTENSION [None]
